FAERS Safety Report 7222412-3 (Version None)
Quarter: 2011Q1

REPORT INFORMATION
  Report Type: 
  Country: None (occurrence: None)
  Receive Date: 20110103
  Receipt Date: 20101228
  Transmission Date: 20110831
  Serious: Yes (Hospitalization)
  Sender: FDA-Public Use
  Company Number: 2010SP061973

PATIENT
  Age: 68 Year
  Sex: Male
  Weight: 60 kg

DRUGS (9)
  1. FERON (INTERFERON) [Suspect]
     Indication: HEPATITIS C
     Dosage: 6 MIU QD, IV; 6 MIU, IV; 6 MIU TIW, IV;
     Route: 042
     Dates: start: 20100810, end: 20100823
  2. FERON (INTERFERON) [Suspect]
     Indication: HEPATITIS C
     Dosage: 6 MIU QD, IV; 6 MIU, IV; 6 MIU TIW, IV;
     Route: 042
     Dates: start: 20100908, end: 20101104
  3. FERON (INTERFERON) [Suspect]
     Indication: HEPATITIS C
     Dosage: 6 MIU QD, IV; 6 MIU, IV; 6 MIU TIW, IV;
     Route: 042
     Dates: start: 20100824, end: 20100907
  4. POLARAMINE [Concomitant]
  5. LOCHOL [Concomitant]
  6. REBETOL [Suspect]
     Indication: HEPATITIS C
     Dosage: 800 MG QD/ PO
     Route: 048
     Dates: start: 20100810, end: 20101104
  7. AMLODIPINE [Concomitant]
  8. SELBEX [Concomitant]
  9. GLIMICRON [Concomitant]

REACTIONS (2)
  - PLEURAL EFFUSION [None]
  - PYOTHORAX [None]
